FAERS Safety Report 7712939-X (Version None)
Quarter: 2011Q3

REPORT INFORMATION
  Report Type: 
  Country: None (occurrence: None)
  Receive Date: 20110826
  Receipt Date: 20110817
  Transmission Date: 20111222
  Serious: Yes (Death)
  Sender: FDA-Public Use
  Company Number: US-BRISTOL-MYERS SQUIBB COMPANY-16004947

PATIENT
  Sex: Female

DRUGS (2)
  1. CYCLOPHOSPHAMIDE [Suspect]
     Indication: HODGKIN'S DISEASE
  2. BUSULFAN [Suspect]
     Indication: HODGKIN'S DISEASE
     Route: 048

REACTIONS (2)
  - MYELODYSPLASTIC SYNDROME [None]
  - INFECTION [None]
